FAERS Safety Report 4960274-5 (Version None)
Quarter: 2006Q1

REPORT INFORMATION
  Report Type: 
  Country: None (occurrence: None)
  Receive Date: 20060328
  Receipt Date: 20060316
  Transmission Date: 20060701
  Serious: Yes (Hospitalization, Other)
  Sender: FDA-Public Use
  Company Number: 2006037289

PATIENT
  Age: 51 Year
  Sex: Female

DRUGS (2)
  1. CELEBREX [Suspect]
     Indication: BACK PAIN
     Dosage: 200 MG (200 MG, 1 IN 1 D), ORAL
     Route: 048
     Dates: start: 20060313, end: 20060313
  2. NORGESIC (ACETYLSALICYLIC ACID, CAFFEINE, ORPHENADINE CITRATE) [Concomitant]

REACTIONS (3)
  - BLOOD PRESSURE IMMEASURABLE [None]
  - HYPERSENSITIVITY [None]
  - HYPOAESTHESIA [None]
